FAERS Safety Report 6670296-4 (Version None)
Quarter: 2010Q2

REPORT INFORMATION
  Report Type: 
  Country: None (occurrence: None)
  Receive Date: 20100405
  Receipt Date: 20100326
  Transmission Date: 20101027
  Serious: Yes (Other)
  Sender: FDA-Public Use
  Company Number: 2010AL001898

PATIENT
  Age: 65 Year
  Sex: Female

DRUGS (14)
  1. DOXAZOSIN MESYLATE [Suspect]
     Dosage: 1 MG;X1;PO
     Route: 048
  2. PILOCARPINE HYDROCHLORIDE [Concomitant]
  3. HYDROCHLORIDE [Concomitant]
  4. SODIUM CHLORIDE [Concomitant]
  5. ROSUVASTATIN [Concomitant]
  6. AZITHROMYCIN [Concomitant]
  7. CANDESARTAN [Concomitant]
  8. ACETYLSALICYLIC ACID SRT [Concomitant]
  9. BENDROFLUMETHIAZIDE [Concomitant]
  10. TIOTROPIUM BROMIDE [Concomitant]
  11. TERBUTALINE SULFATE [Concomitant]
  12. ANCOBON [Concomitant]
  13. EZETIMIBE [Concomitant]
  14. LAMOTRIGINE [Concomitant]

REACTIONS (1)
  - CONVULSION [None]
